FAERS Safety Report 15497598 (Version 1)
Quarter: 2018Q4

REPORT INFORMATION
  Report Type: Spontaneous
  Country: US (occurrence: US)
  Receive Date: 20181005
  Receipt Date: 20181005
  Transmission Date: 20190205
  Serious: Yes (Death)
  Sender: FDA-Public Use
  Company Number: None

PATIENT
  Sex: Female

DRUGS (8)
  1. ONDANSETRON TAB 4MG [Concomitant]
  2. IBRANCE [Suspect]
     Active Substance: PALBOCICLIB
     Indication: BREAST CANCER
     Route: 048
  3. PROCHLORPER TAB 5MG [Concomitant]
  4. EXEMESTANE TAB 25MG [Concomitant]
     Active Substance: EXEMESTANE
  5. OXYCOD/APAP TAB 10-325MG [Concomitant]
  6. MORPHINE SULF TAB 15MG ER [Concomitant]
  7. NARCAN SPR [Concomitant]
  8. OLANZAPINE TAB 2.5MG [Concomitant]

REACTIONS (1)
  - Death [None]
